FAERS Safety Report 13901053 (Version 1)
Quarter: 2017Q3

REPORT INFORMATION
  Report Type: Spontaneous
  Country: CA (occurrence: CA)
  Receive Date: 20170824
  Receipt Date: 20170824
  Transmission Date: 20171127
  Serious: Yes (Death)
  Sender: FDA-Public Use
  Company Number: CA-TEVA-799298ACC

PATIENT
  Age: 73 Year
  Sex: Female
  Weight: 59 kg

DRUGS (5)
  1. LANSOPRAZOLE. [Concomitant]
     Active Substance: LANSOPRAZOLE
  2. GEMCITABINE INJECTION SINGLE-USE VIALS 200MG/5.3ML 1G/26.3ML 2G/52.6ML [Suspect]
     Active Substance: GEMCITABINE\GEMCITABINE HYDROCHLORIDE
     Indication: CHEMOTHERAPY
     Route: 042
  3. HYDROMORPHONE [Concomitant]
     Active Substance: HYDROMORPHONE
  4. GEMCITABINE INJECTION SINGLE-USE VIALS 200MG/5.3ML 1G/26.3ML 2G/52.6ML [Suspect]
     Active Substance: GEMCITABINE\GEMCITABINE HYDROCHLORIDE
     Indication: ADJUVANT THERAPY
  5. SYNTHROID - TAB 175MCG [Concomitant]

REACTIONS (10)
  - Acute pulmonary oedema [Fatal]
  - Lung disorder [Fatal]
  - Respiratory failure [Fatal]
  - Drug-induced liver injury [Fatal]
  - Oedema [Fatal]
  - Confusional state [Fatal]
  - General physical health deterioration [Fatal]
  - Pruritus [Fatal]
  - Acute kidney injury [Fatal]
  - Jaundice [Fatal]
